FAERS Safety Report 24575677 (Version 1)
Quarter: 2024Q4

REPORT INFORMATION
  Report Type: Spontaneous
  Country: US (occurrence: None)
  Receive Date: 20241101
  Receipt Date: 20241101
  Transmission Date: 20250114
  Serious: Yes (Hospitalization)
  Sender: Public
  Company Number: None

PATIENT
  Age: 76 Year
  Sex: Male

DRUGS (1)
  1. DILTIAZEM [Suspect]
     Active Substance: DILTIAZEM
     Indication: Heart rate

REACTIONS (4)
  - Bradycardia [None]
  - Back pain [None]
  - Sinus bradycardia [None]
  - Atrioventricular block [None]

NARRATIVE: CASE EVENT DATE: 20240719
